FAERS Safety Report 9216009 (Version 1)
Quarter: 2013Q2

REPORT INFORMATION
  Report Type: Spontaneous
  Country: US (occurrence: US)
  Receive Date: 20130408
  Receipt Date: 20130408
  Transmission Date: 20140414
  Serious: No
  Sender: FDA-Public Use
  Company Number: US-JNJFOC-20130306629

PATIENT
  Sex: Male
  Weight: 70.31 kg

DRUGS (4)
  1. INVEGA SUSTENNA [Suspect]
     Indication: BIPOLAR DISORDER
     Route: 030
     Dates: start: 2012
  2. DEPAKOTE [Concomitant]
     Indication: BIPOLAR DISORDER
     Route: 048
  3. VIIBRYD [Concomitant]
     Indication: DEPRESSION
     Route: 048
     Dates: start: 2013
  4. SULFAMETHOXAZOLE [Concomitant]
     Indication: ACNE
     Route: 048
     Dates: start: 2012

REACTIONS (2)
  - Myalgia [Not Recovered/Not Resolved]
  - Vision blurred [Not Recovered/Not Resolved]
